FAERS Safety Report 9580898 (Version 2)
Quarter: 2014Q3

REPORT INFORMATION
  Report Type: Spontaneous
  Country: US (occurrence: US)
  Receive Date: 20131002
  Receipt Date: 20140818
  Transmission Date: 20150326
  Serious: Yes (Hospitalization, Other)
  Sender: FDA-Public Use
  Company Number: US-009507513-1309USA014567

PATIENT
  Sex: Female
  Weight: 80.91 kg

DRUGS (1)
  1. NUVARING [Suspect]
     Active Substance: ETHINYL ESTRADIOL\ETONOGESTREL
     Indication: CONTRACEPTION
     Dosage: UNK, INSERT 1 RING INTO VAGINA 1X MO AS DIR, REMOVE AFTER 3 WKS, REINSERT 1 RING AFTER 1 WK
     Route: 067
     Dates: start: 20070912

REACTIONS (7)
  - Asthma [Unknown]
  - Pleural fibrosis [Unknown]
  - Pulmonary embolism [Unknown]
  - Hodgkin^s disease [Unknown]
  - Pulmonary granuloma [Unknown]
  - Pericardial effusion [Unknown]
  - Tooth extraction [Unknown]

NARRATIVE: CASE EVENT DATE: 20110726
